FAERS Safety Report 9943140 (Version 3)
Quarter: 2014Q2

REPORT INFORMATION
  Report Type: Spontaneous
  Country: US (occurrence: US)
  Receive Date: 20140303
  Receipt Date: 20140410
  Transmission Date: 20141212
  Serious: Yes (Other)
  Sender: FDA-Public Use
  Company Number: US-GLAXOSMITHKLINE-A1061718A

PATIENT
  Age: 76 Year
  Sex: Male
  Weight: 68.2 kg

DRUGS (7)
  1. AVODART [Suspect]
     Indication: BENIGN PROSTATIC HYPERPLASIA
     Dosage: 1CAP PER DAY
     Route: 048
     Dates: start: 2006
  2. UROXATRAL [Concomitant]
     Indication: BENIGN PROSTATIC HYPERPLASIA
     Dates: end: 2008
  3. MULTAQ [Concomitant]
     Indication: ATRIAL FIBRILLATION
     Dates: start: 2010, end: 2013
  4. COUMADIN [Concomitant]
     Indication: ATRIAL FIBRILLATION
     Dates: start: 2010, end: 2013
  5. ASPIRIN [Concomitant]
     Indication: ATRIAL FIBRILLATION
     Dates: start: 2010
  6. MULTIVITAMIN [Concomitant]
  7. SLOW MAG [Concomitant]

REACTIONS (3)
  - Prostate cancer [Not Recovered/Not Resolved]
  - Prostatic specific antigen increased [Not Recovered/Not Resolved]
  - Drug ineffective [Unknown]
